FAERS Safety Report 16067780 (Version 1)
Quarter: 2019Q1

REPORT INFORMATION
  Report Type: Spontaneous
  Country: US (occurrence: US)
  Receive Date: 20190313
  Receipt Date: 20190313
  Transmission Date: 20190418
  Serious: No
  Sender: FDA-Public Use
  Company Number: US-BRISTOL-MYERS SQUIBB COMPANY-BMS-2019-024813

PATIENT
  Age: 68 Year
  Sex: Female
  Weight: 78.9 kg

DRUGS (2)
  1. ELIQUIS [Suspect]
     Active Substance: APIXABAN
     Indication: DEEP VEIN THROMBOSIS
     Dosage: 5 MILLIGRAM, BID
     Route: 065
     Dates: start: 201805
  2. ELIQUIS [Suspect]
     Active Substance: APIXABAN
     Indication: PULMONARY EMBOLISM
     Route: 065

REACTIONS (3)
  - Swelling [Unknown]
  - Fluid retention [Unknown]
  - Weight increased [Unknown]

NARRATIVE: CASE EVENT DATE: 201805
